FAERS Safety Report 9438704 (Version 1)
Quarter: 2013Q3

REPORT INFORMATION
  Report Type: Spontaneous
  Country: US (occurrence: US)
  Receive Date: 20130802
  Receipt Date: 20130802
  Transmission Date: 20140515
  Serious: No
  Sender: FDA-Public Use
  Company Number: US-BAYER-2013-092113

PATIENT
  Sex: Female

DRUGS (2)
  1. BEYAZ [Suspect]
  2. YASMIN [Suspect]
     Indication: HORMONE LEVEL ABNORMAL
     Dosage: UNK

REACTIONS (2)
  - Metrorrhagia [None]
  - Off label use [None]
